FAERS Safety Report 7048620-2 (Version None)
Quarter: 2010Q4

REPORT INFORMATION
  Report Type: 
  Country: None (occurrence: None)
  Receive Date: 20101018
  Receipt Date: 20101008
  Transmission Date: 20110411
  Serious: Yes (Hospitalization, Other)
  Sender: FDA-Public Use
  Company Number: US-BAYER-201020198BCC

PATIENT
  Age: 49 Year
  Sex: Male
  Weight: 68 kg

DRUGS (8)
  1. ASPIRIN [Suspect]
     Indication: PRODUCT USED FOR UNKNOWN INDICATION
     Dosage: TOTAL DAILY DOSE: 81 MG  UNIT DOSE: 81 MG
     Route: 065
  2. PLAVIX [Suspect]
     Indication: MYOCARDIAL INFARCTION
     Route: 065
     Dates: start: 20090101
  3. PLAVIX [Suspect]
     Route: 065
     Dates: start: 20050101, end: 20081001
  4. PLAVIX [Suspect]
     Route: 065
     Dates: start: 20030801, end: 20041001
  5. LIPITOR [Concomitant]
     Route: 065
  6. LISINOPRIL [Concomitant]
     Route: 065
  7. VITAMINS [Concomitant]
     Route: 065
  8. FISH OIL [Concomitant]
     Route: 065

REACTIONS (7)
  - CONTUSION [None]
  - DEVICE OCCLUSION [None]
  - HAEMORRHAGIC DIATHESIS [None]
  - IN-STENT CORONARY ARTERY RESTENOSIS [None]
  - MYOCARDIAL INFARCTION [None]
  - POLYP [None]
  - WEIGHT DECREASED [None]
